FAERS Safety Report 14195179 (Version 1)
Quarter: 2017Q4

REPORT INFORMATION
  Report Type: Spontaneous
  Country: JP (occurrence: JP)
  Receive Date: 20171116
  Receipt Date: 20171116
  Transmission Date: 20180321
  Serious: Yes (Hospitalization)
  Sender: FDA-Public Use
  Company Number: JP-PFIZER INC-2017486807

PATIENT
  Age: 8 Decade
  Sex: Male

DRUGS (4)
  1. CARNACULIN [Concomitant]
     Active Substance: KALLIDINOGENASE
     Dosage: UNK
  2. ACETAMINOPHEN. [Suspect]
     Active Substance: ACETAMINOPHEN
     Indication: NEURALGIA
     Dosage: 600 MG, 3X/DAY
     Route: 048
     Dates: start: 201607
  3. METHYCOBAL [Suspect]
     Active Substance: METHYLCOBALAMIN
     Indication: NEURALGIA
     Dosage: 500 UG, 3X/DAY
     Route: 048
     Dates: start: 201607
  4. LYRICA [Suspect]
     Active Substance: PREGABALIN
     Indication: NEURALGIA
     Dosage: 25 MG, 2X/DAY
     Route: 048
     Dates: start: 201608, end: 201609

REACTIONS (1)
  - Drug-induced liver injury [Recovered/Resolved]

NARRATIVE: CASE EVENT DATE: 201609
